FAERS Safety Report 23675038 (Version 2)
Quarter: 2024Q2

REPORT INFORMATION
  Report Type: Spontaneous
  Country: JP (occurrence: JP)
  Receive Date: 20240326
  Receipt Date: 20240404
  Transmission Date: 20240715
  Serious: Yes (Other)
  Sender: FDA-Public Use
  Company Number: JP-NEUROCRINE BIOSCIENCES INC.-2024NBI02157

PATIENT
  Age: 37 Year
  Sex: Female

DRUGS (6)
  1. VALBENAZINE [Suspect]
     Active Substance: VALBENAZINE
     Indication: Tardive dyskinesia
     Dosage: 40 MILLIGRAM, QD
     Route: 048
     Dates: start: 20240219, end: 20240222
  2. RIVOTRIL [Concomitant]
     Active Substance: CLONAZEPAM
     Dosage: UNKNOWN
     Route: 065
  3. BLONANSERIN [Concomitant]
     Active Substance: BLONANSERIN
     Dosage: UNKNOWN
     Route: 065
  4. ETHYL LOFLAZEPATE [Concomitant]
     Active Substance: ETHYL LOFLAZEPATE
     Dosage: UNKNOWN
     Route: 065
  5. BROTIZOLAM [Concomitant]
     Active Substance: BROTIZOLAM
     Dosage: UNKNOWN
     Route: 065
  6. AKINETON [Concomitant]
     Active Substance: BIPERIDEN HYDROCHLORIDE

REACTIONS (1)
  - Tardive dyskinesia [Recovered/Resolved]

NARRATIVE: CASE EVENT DATE: 20240219
